FAERS Safety Report 6734403-7 (Version None)
Quarter: 2010Q2

REPORT INFORMATION
  Report Type: 
  Country: None (occurrence: None)
  Receive Date: 20100520
  Receipt Date: 20100517
  Transmission Date: 20101027
  Serious: Yes (Hospitalization)
  Sender: FDA-Public Use
  Company Number: CHPA2010US08284

PATIENT
  Sex: Male
  Weight: 12.245 kg

DRUGS (1)
  1. TRIAMINIC NIGHT TIME COLD + COUGH (NCH) [Suspect]
     Dosage: 3/4 OF BOTTLE, UNK
     Route: 048
     Dates: start: 20100511, end: 20100511

REACTIONS (3)
  - ACCIDENTAL DRUG INTAKE BY CHILD [None]
  - ACCIDENTAL OVERDOSE [None]
  - NO ADVERSE EVENT [None]
